FAERS Safety Report 10388237 (Version 1)
Quarter: 2014Q3

REPORT INFORMATION
  Report Type: Spontaneous
  Country: FR (occurrence: FR)
  Receive Date: 20140815
  Receipt Date: 20140815
  Transmission Date: 20150326
  Serious: Yes (Other)
  Sender: FDA-Public Use
  Company Number: ALCN2014FR004457

PATIENT
  Age: 34 Year
  Sex: Male

DRUGS (3)
  1. IMIPENEM [Concomitant]
     Active Substance: IMIPENEM
     Dosage: 500 MG, TID
     Route: 057
  2. OFLOXACIN. [Concomitant]
     Active Substance: OFLOXACIN
     Dosage: 200 MG, BID
     Route: 057
  3. DEXAMETHASONE. [Suspect]
     Active Substance: DEXAMETHASONE
     Dosage: UNK
     Route: 057

REACTIONS (1)
  - Off label use [Unknown]
